FAERS Safety Report 6154266-0 (Version None)
Quarter: 2009Q2

REPORT INFORMATION
  Report Type: 
  Country: None (occurrence: None)
  Receive Date: 20090410
  Receipt Date: 20090330
  Transmission Date: 20091009
  Serious: Yes (Hospitalization)
  Sender: FDA-Public Use
  Company Number: MPS1-1000150

PATIENT
  Age: 4 Year
  Sex: Male
  Weight: 17.5 kg

DRUGS (5)
  1. ALDURAZYME [Suspect]
     Indication: MUCOPOLYSACCHARIDOSIS I
     Dosage: 100 U/KG, 1X/W, INTRAVENOUS
     Route: 042
     Dates: start: 20080716
  2. CREON [Concomitant]
  3. URSOLVAN-200 (URSODEOXYCHOLIC ACID) [Concomitant]
  4. OMEPRAZOLE [Concomitant]
  5. UVESTEROL (ASCORBIC ACID, ERGOCALCIFEROL, RETINOL, TOCOPHEROL) [Concomitant]

REACTIONS (3)
  - ANGIOEDEMA [None]
  - CONJUNCTIVITIS ALLERGIC [None]
  - SNORING [None]
